FAERS Safety Report 7428770-9 (Version None)
Quarter: 2011Q2

REPORT INFORMATION
  Report Type: 
  Country: None (occurrence: None)
  Receive Date: 20110421
  Receipt Date: 20110412
  Transmission Date: 20111010
  Serious: Yes (Hospitalization)
  Sender: FDA-Public Use
  Company Number: US-BRISTOL-MYERS SQUIBB COMPANY-15671464

PATIENT
  Age: 55 Year
  Sex: Male
  Weight: 95 kg

DRUGS (3)
  1. WARFARIN SODIUM [Suspect]
  2. TRILIPIX [Suspect]
     Indication: HYPERTRIGLYCERIDAEMIA
  3. OLMESARTAN MEDOXOMIL [Concomitant]

REACTIONS (2)
  - PULMONARY EMBOLISM [None]
  - THROMBOSIS [None]
